FAERS Safety Report 6788878-8 (Version None)
Quarter: 2010Q2

REPORT INFORMATION
  Report Type: 
  Country: None (occurrence: None)
  Receive Date: 20100623
  Receipt Date: 20080613
  Transmission Date: 20101027
  Serious: No
  Sender: FDA-Public Use
  Company Number: US-PFIZER INC-2008050292

PATIENT
  Sex: Female

DRUGS (9)
  1. AROMASIN [Suspect]
  2. ACETYLSALICYLIC ACID [Concomitant]
  3. KLONOPIN [Concomitant]
  4. TRAZODONE HYDROCHLORIDE [Concomitant]
  5. CLONIDINE [Concomitant]
  6. CALCIUM CARBONATE [Concomitant]
  7. MULTI-VITAMINS [Concomitant]
  8. VITAMIN E [Concomitant]
  9. PROZAC [Concomitant]

REACTIONS (3)
  - GENITAL DISORDER FEMALE [None]
  - HYPERSENSITIVITY [None]
  - PHOTOSENSITIVITY REACTION [None]
